FAERS Safety Report 4970254-1 (Version None)
Quarter: 2006Q2

REPORT INFORMATION
  Report Type: 
  Country: None (occurrence: None)
  Receive Date: 20060412
  Receipt Date: 20060330
  Transmission Date: 20061013
  Serious: Yes (Hospitalization)
  Sender: FDA-Public Use
  Company Number: PHRM2006FR01212

PATIENT
  Age: 64 Year
  Sex: Female
  Weight: 100 kg

DRUGS (10)
  1. GLUCOPHAGE [Suspect]
     Route: 048
  2. COVERSYL /FRA/ [Suspect]
     Dosage: 4 MG, QD
     Route: 048
     Dates: end: 20060122
  3. TIMOLOL MALEATE [Suspect]
  4. VOLTARENE LP [Suspect]
     Indication: PAIN
     Route: 048
     Dates: start: 20060107, end: 20060112
  5. IXPRIM [Concomitant]
     Indication: PAIN
     Route: 048
     Dates: start: 20060107, end: 20060112
  6. TETRAZEPAM [Concomitant]
     Indication: PAIN
     Route: 048
     Dates: start: 20060107, end: 20060112
  7. PARIET [Concomitant]
     Indication: ABDOMINAL PAIN
     Dosage: 10 MG, UNK
     Route: 048
     Dates: start: 20060107, end: 20060112
  8. ISOPTIN [Suspect]
     Dosage: 120 MG, UNK
     Route: 048
     Dates: end: 20060122
  9. DAONIL [Concomitant]
     Route: 048
  10. ACTOS [Concomitant]
     Dosage: 15 MG, UNK
     Route: 048

REACTIONS (18)
  - ABDOMINAL PAIN [None]
  - BLOOD CREATININE INCREASED [None]
  - BLOOD LACTIC ACID INCREASED [None]
  - BLOOD PRESSURE ABNORMAL [None]
  - BLOOD UREA INCREASED [None]
  - BRADYARRHYTHMIA [None]
  - DIABETES MELLITUS INADEQUATE CONTROL [None]
  - DIABETIC KETOACIDOSIS [None]
  - DRUG INTERACTION [None]
  - GLYCOSYLATED HAEMOGLOBIN INCREASED [None]
  - HYPERGLYCAEMIA [None]
  - HYPERHIDROSIS [None]
  - HYPERKALAEMIA [None]
  - LOSS OF CONSCIOUSNESS [None]
  - MALAISE [None]
  - NAUSEA [None]
  - RENAL FAILURE ACUTE [None]
  - URINARY TRACT INFECTION [None]
